FAERS Safety Report 9180531 (Version 2)
Quarter: 2013Q1

REPORT INFORMATION
  Report Type: Spontaneous
  Country: US (occurrence: None)
  Receive Date: 20130320
  Receipt Date: 20130328
  Transmission Date: 20140127
  Serious: Yes (Death)
  Sender: FDA-Public Use
  Company Number: 9039997-2013-00032

PATIENT
  Age: 66 Year
  Sex: Male

DRUGS (1)
  1. LEVULAN KERASTICK [Suspect]
     Indication: ACTINIC KERATOSIS
     Route: 061
     Dates: start: 20130220

REACTIONS (3)
  - Cardio-respiratory arrest [None]
  - Blood glucose increased [None]
  - Arrhythmia [None]
